FAERS Safety Report 26023592 (Version 1)
Quarter: 2025Q4

REPORT INFORMATION
  Report Type: Spontaneous
  Country: US (occurrence: US)
  Receive Date: 20251111
  Receipt Date: 20251111
  Transmission Date: 20260118
  Serious: Yes (Other)
  Sender: HIKMA
  Company Number: US-HIKMA PHARMACEUTICALS USA INC.-US-H14001-25-11995

PATIENT
  Sex: Female

DRUGS (4)
  1. AMITRIPTYLINE [Suspect]
     Active Substance: AMITRIPTYLINE
     Indication: Product used for unknown indication
     Dosage: UNKNOWN
     Route: 065
  2. CYCLOBENZAPRINE [Suspect]
     Active Substance: CYCLOBENZAPRINE
     Indication: Product used for unknown indication
     Dosage: UNKNOWN
     Route: 065
  3. ROBAXIN [Suspect]
     Active Substance: METHOCARBAMOL
     Indication: Insomnia
     Dosage: UNKNOWN
     Route: 065
  4. LORBRENA [Concomitant]
     Active Substance: LORLATINIB
     Indication: Product used for unknown indication
     Dosage: UNKNOWN
     Route: 065

REACTIONS (6)
  - Loss of consciousness [Unknown]
  - Hyperlipidaemia [Unknown]
  - Fat tissue increased [Unknown]
  - Sleep talking [Unknown]
  - Trigger finger [Unknown]
  - Sedation [Unknown]
